FAERS Safety Report 24979138 (Version 2)
Quarter: 2025Q2

REPORT INFORMATION
  Report Type: Spontaneous
  Country: DE (occurrence: DE)
  Receive Date: 20250218
  Receipt Date: 20250402
  Transmission Date: 20250717
  Serious: Yes (Other)
  Sender: TAKEDA
  Company Number: DE-TAKEDA-2025TUS014996

PATIENT
  Sex: Female
  Weight: 70 kg

DRUGS (4)
  1. ENTYVIO [Suspect]
     Active Substance: VEDOLIZUMAB
     Indication: Crohn^s disease
     Dates: start: 20250120, end: 20250203
  2. PREDNISOLONE [Concomitant]
     Active Substance: PREDNISOLONE
     Dates: start: 20241202, end: 20250210
  3. MESALAMINE [Concomitant]
     Active Substance: MESALAMINE
     Dosage: 1200 MILLIGRAM, TID
     Dates: start: 20241218
  4. MESALAMINE [Concomitant]
     Active Substance: MESALAMINE

REACTIONS (7)
  - Drug-induced liver injury [Not Recovered/Not Resolved]
  - Antineutrophil cytoplasmic antibody positive [Unknown]
  - Hepatic enzyme increased [Unknown]
  - Malaise [Unknown]
  - Chills [Unknown]
  - Fatigue [Not Recovered/Not Resolved]
  - Pyrexia [Not Recovered/Not Resolved]
